FAERS Safety Report 15715362 (Version 1)
Quarter: 2018Q4

REPORT INFORMATION
  Report Type: Spontaneous
  Country: US (occurrence: US)
  Receive Date: 20181212
  Receipt Date: 20181212
  Transmission Date: 20190205
  Serious: No
  Sender: FDA-Public Use
  Company Number: None

PATIENT
  Sex: Female

DRUGS (1)
  1. LATANOPROSTENE BUNOD OPHTHALMIC SOLUTION 0.005% [Suspect]
     Active Substance: LATANOPROSTENE BUNOD

REACTIONS (1)
  - Visual field defect [None]
